FAERS Safety Report 9405375 (Version 1)
Quarter: 2013Q3

REPORT INFORMATION
  Report Type: Report from Study
  Country: FR (occurrence: FR)
  Receive Date: 20130717
  Receipt Date: 20130717
  Transmission Date: 20140515
  Serious: Yes (Hospitalization)
  Sender: FDA-Public Use
  Company Number: FR-MERCK-2009SP040874

PATIENT
  Age: 40 Year
  Sex: Male
  Weight: 77 kg

DRUGS (6)
  1. PEG-INTRON [Suspect]
     Indication: CHRONIC HEPATITIS C
     Dosage: 0.5 ?G/KG, QW
     Route: 058
     Dates: start: 20090602, end: 20091210
  2. PLACEBO [Suspect]
     Indication: CHRONIC HEPATITIS C
     Dosage: 1000 MG, QD
     Route: 048
     Dates: start: 20090602, end: 20091210
  3. SUBUTEX [Concomitant]
     Indication: SUPPLEMENTATION THERAPY
     Dosage: 8 MG, QD
     Route: 065
     Dates: end: 200912
  4. PYRIDOXINE (+) THIAMINE [Concomitant]
     Indication: PARAESTHESIA
     Dosage: 3 DF, QD
     Route: 048
     Dates: start: 20090825
  5. ACEPROMAZINE MALEATE (+) ACEPROMETAZINE MALEATE (+) CLORAZEPATE DIPOTA [Concomitant]
     Indication: SLEEP DISORDER
     Dosage: 10 MG, QD
     Route: 065
     Dates: start: 20090825
  6. BEBETINA [Concomitant]
     Indication: ANTIVIRAL PROPHYLAXIS
     Dosage: 500 MG, PRN
     Route: 065
     Dates: start: 20090825

REACTIONS (4)
  - Haematuria [Recovered/Resolved]
  - Fall [Recovered/Resolved]
  - Rib fracture [Recovered/Resolved]
  - Thrombocytopenia [Recovered/Resolved]
